FAERS Safety Report 17004912 (Version 1)
Quarter: 2019Q4

REPORT INFORMATION
  Report Type: Spontaneous
  Country: US (occurrence: US)
  Receive Date: 20190926
  Receipt Date: 20190926
  Transmission Date: 20200122
  Serious: No
  Sender: FDA-Public Use
  Company Number: None

PATIENT

DRUGS (2)
  1. PHENYLEPHRINE [Suspect]
     Active Substance: PHENYLEPHRINE HYDROCHLORIDE
  2. EPINEPHRINE. [Suspect]
     Active Substance: EPINEPHRINE

REACTIONS (4)
  - Product packaging confusion [None]
  - Electrocardiogram change [None]
  - Wrong product administered [None]
  - Product appearance confusion [None]
